FAERS Safety Report 6959154-5 (Version None)
Quarter: 2010Q3

REPORT INFORMATION
  Report Type: 
  Country: None (occurrence: None)
  Receive Date: 20100831
  Receipt Date: 20100818
  Transmission Date: 20110219
  Serious: Yes (Other)
  Sender: FDA-Public Use
  Company Number: PHHY2010CA45484

PATIENT
  Sex: Female
  Weight: 72.9 kg

DRUGS (8)
  1. ACLASTA/ZOLEDRONATE T29581+A+ [Suspect]
     Indication: OSTEOPOROSIS POSTMENOPAUSAL
     Dosage: 5 MG/ 100 ML
     Dates: start: 20090106
  2. DIDRONEL [Concomitant]
     Dosage: 400 MG, UNK
  3. EVISTA [Concomitant]
     Dosage: 670 MG, UNK
  4. HORMONOTHERAPY [Concomitant]
  5. FORTEO [Concomitant]
     Dosage: 20 MG, UNK
  6. MIACALCIN [Concomitant]
  7. VITAMIN D [Concomitant]
     Dosage: 10000 UL, UNK
  8. CALCIUM [Concomitant]
     Dosage: 1200 MG, UNK
     Dates: start: 20040705

REACTIONS (2)
  - FALL [None]
  - FOOT FRACTURE [None]
